FAERS Safety Report 25231264 (Version 1)
Quarter: 2025Q2

REPORT INFORMATION
  Report Type: Spontaneous
  Country: AT (occurrence: AT)
  Receive Date: 20250423
  Receipt Date: 20250423
  Transmission Date: 20250716
  Serious: Yes (Other)
  Sender: MYLAN
  Company Number: AT-AMGEN-AUTSP2025067824

PATIENT
  Sex: Female

DRUGS (24)
  1. POMALIDOMIDE [Suspect]
     Active Substance: POMALIDOMIDE
     Indication: Plasma cell myeloma
  2. POMALIDOMIDE [Suspect]
     Active Substance: POMALIDOMIDE
     Route: 065
  3. POMALIDOMIDE [Suspect]
     Active Substance: POMALIDOMIDE
     Route: 065
  4. POMALIDOMIDE [Suspect]
     Active Substance: POMALIDOMIDE
  5. KYPROLIS [Suspect]
     Active Substance: CARFILZOMIB
     Indication: Plasma cell myeloma
     Dosage: 56 MILLIGRAM/SQ. METER, 2 TIMES/WK (56 MILLIGRAM/SQ. METER, 2 TIMES/WK  )
  6. KYPROLIS [Suspect]
     Active Substance: CARFILZOMIB
     Dosage: 56 MILLIGRAM/SQ. METER, 2 TIMES/WK (56 MILLIGRAM/SQ. METER, 2 TIMES/WK  )
  7. KYPROLIS [Suspect]
     Active Substance: CARFILZOMIB
     Dosage: 56 MILLIGRAM/SQ. METER, 2 TIMES/WK (56 MILLIGRAM/SQ. METER, 2 TIMES/WK  )
     Route: 065
  8. KYPROLIS [Suspect]
     Active Substance: CARFILZOMIB
     Dosage: 56 MILLIGRAM/SQ. METER, 2 TIMES/WK (56 MILLIGRAM/SQ. METER, 2 TIMES/WK  )
     Route: 065
  9. KYPROLIS [Suspect]
     Active Substance: CARFILZOMIB
  10. KYPROLIS [Suspect]
     Active Substance: CARFILZOMIB
  11. KYPROLIS [Suspect]
     Active Substance: CARFILZOMIB
     Route: 065
  12. KYPROLIS [Suspect]
     Active Substance: CARFILZOMIB
     Route: 065
  13. KYPROLIS [Suspect]
     Active Substance: CARFILZOMIB
     Dosage: 30 MILLIGRAM/SQ. METER, QW (30 MILLIGRAM/SQ. METER, QWK)
  14. KYPROLIS [Suspect]
     Active Substance: CARFILZOMIB
     Dosage: 30 MILLIGRAM/SQ. METER, QW (30 MILLIGRAM/SQ. METER, QWK)
     Route: 065
  15. KYPROLIS [Suspect]
     Active Substance: CARFILZOMIB
     Dosage: 30 MILLIGRAM/SQ. METER, QW (30 MILLIGRAM/SQ. METER, QWK)
  16. KYPROLIS [Suspect]
     Active Substance: CARFILZOMIB
     Dosage: 30 MILLIGRAM/SQ. METER, QW (30 MILLIGRAM/SQ. METER, QWK)
     Route: 065
  17. ISATUXIMAB [Suspect]
     Active Substance: ISATUXIMAB
     Indication: Plasma cell myeloma
  18. ISATUXIMAB [Suspect]
     Active Substance: ISATUXIMAB
     Route: 065
  19. ISATUXIMAB [Suspect]
     Active Substance: ISATUXIMAB
     Route: 065
  20. ISATUXIMAB [Suspect]
     Active Substance: ISATUXIMAB
  21. DEXAMETHASONE [Suspect]
     Active Substance: DEXAMETHASONE
     Indication: Plasma cell myeloma
  22. DEXAMETHASONE [Suspect]
     Active Substance: DEXAMETHASONE
     Route: 065
  23. DEXAMETHASONE [Suspect]
     Active Substance: DEXAMETHASONE
     Route: 065
  24. DEXAMETHASONE [Suspect]
     Active Substance: DEXAMETHASONE

REACTIONS (3)
  - Cytopenia [Unknown]
  - Plasma cell myeloma [Unknown]
  - Off label use [Unknown]
